FAERS Safety Report 23236165 (Version 2)
Quarter: 2023Q4

REPORT INFORMATION
  Report Type: Report from Study
  Country: NL (occurrence: NL)
  Receive Date: 20231128
  Receipt Date: 20231130
  Transmission Date: 20240109
  Serious: Yes (Death, Hospitalization, Other)
  Sender: FDA-Public Use
  Company Number: NL-002147023-NVSC2023NL021725

PATIENT
  Sex: Female
  Weight: 169 kg

DRUGS (2)
  1. MEKINIST [Suspect]
     Active Substance: TRAMETINIB DIMETHYL SULFOXIDE
     Indication: Product used for unknown indication
     Dosage: UNK
     Route: 065
     Dates: start: 20211222, end: 20230127
  2. TAFINLAR [Suspect]
     Active Substance: DABRAFENIB MESYLATE
     Indication: Brain neoplasm
     Dosage: 125 MG (MF6589 FOR 50 MG/ MC9572 FOR 75 MG)
     Route: 048
     Dates: start: 20211222, end: 20230127

REACTIONS (6)
  - Malignant neoplasm progression [Fatal]
  - Brain neoplasm [Fatal]
  - Seizure [Not Recovered/Not Resolved]
  - Speech disorder [Not Recovered/Not Resolved]
  - Paresis [Not Recovered/Not Resolved]
  - Visual impairment [Not Recovered/Not Resolved]
